FAERS Safety Report 6487671-3 (Version None)
Quarter: 2009Q4

REPORT INFORMATION
  Report Type: 
  Country: None (occurrence: None)
  Receive Date: 20091210
  Receipt Date: 20091203
  Transmission Date: 20100525
  Serious: Yes (Other)
  Sender: FDA-Public Use
  Company Number: US-ELI_LILLY_AND_COMPANY-US200912001791

PATIENT
  Sex: Female

DRUGS (1)
  1. HUMALOG [Suspect]
     Indication: DIABETES MELLITUS
     Dosage: 8 U, 3/D

REACTIONS (5)
  - DRUG DOSE OMISSION [None]
  - FATIGUE [None]
  - HYPOGLYCAEMIC UNCONSCIOUSNESS [None]
  - MEMORY IMPAIRMENT [None]
  - MOBILITY DECREASED [None]
